FAERS Safety Report 4598169-1 (Version None)
Quarter: 2005Q1

REPORT INFORMATION
  Report Type: 
  Country: None (occurrence: None)
  Receive Date: 20050204
  Receipt Date: 20040414
  Transmission Date: 20050727
  Serious: Yes (Death, Other)
  Sender: FDA-Public Use
  Company Number: PHEH2004US03594

PATIENT
  Age: 53 Year
  Sex: Male
  Weight: 114.3 kg

DRUGS (6)
  1. CLOZARIL [Suspect]
     Indication: SCHIZOAFFECTIVE DISORDER
     Dosage: 100 MG/DAY, ORAL
     Route: 048
  2. HALDOL [Concomitant]
  3. PROCARDIA [Concomitant]
  4. ALLOPURINOL [Concomitant]
  5. ATENOLOL [Concomitant]
  6. COLCHICINE (COLCHICINE) [Concomitant]

REACTIONS (6)
  - CARDIAC ARREST [None]
  - CHEST PAIN [None]
  - CONVULSION [None]
  - DEATH [None]
  - FALL [None]
  - LOSS OF CONSCIOUSNESS [None]
